FAERS Safety Report 4630322-0 (Version None)
Quarter: 2005Q2

REPORT INFORMATION
  Report Type: 
  Country: None (occurrence: None)
  Receive Date: 20050405
  Receipt Date: 20050405
  Transmission Date: 20051028
  Serious: Yes (Hospitalization)
  Sender: FDA-Public Use
  Company Number: None

PATIENT
  Age: 58 Year
  Sex: Male

DRUGS (6)
  1. CASODEX [Suspect]
     Indication: PROSTATE CANCER
     Dosage: 150 MG PO OD OR PLACEBO
     Route: 048
     Dates: start: 20021209, end: 20041208
  2. PLACEBO [Suspect]
  3. PAXIL [Concomitant]
  4. EFFEXOR [Concomitant]
  5. CLONAZEPAM [Concomitant]
  6. LIPITOR [Concomitant]

REACTIONS (6)
  - BLADDER DISORDER [None]
  - CYSTOSCOPY ABNORMAL [None]
  - HAEMATURIA [None]
  - HAEMORRHAGE URINARY TRACT [None]
  - INFLAMMATION [None]
  - RADIATION INJURY [None]
